FAERS Safety Report 18652881 (Version 16)
Quarter: 2025Q4

REPORT INFORMATION
  Report Type: Report from Study
  Country: US (occurrence: US)
  Receive Date: 20201223
  Receipt Date: 20251222
  Transmission Date: 20260118
  Serious: Yes (Hospitalization, Other)
  Sender: TAKEDA
  Company Number: US-TAKEDA-2020TUS057536

PATIENT
  Age: 65 Year
  Sex: Female
  Weight: 93 kg

DRUGS (39)
  1. HUMAN IMMUNOGLOBULIN G [Suspect]
     Active Substance: HUMAN IMMUNOGLOBULIN G
     Indication: Immunodeficiency common variable
     Dosage: 50 GRAM, Q4WEEKS
  2. HUMAN IMMUNOGLOBULIN G [Suspect]
     Active Substance: HUMAN IMMUNOGLOBULIN G
     Indication: B-lymphocyte abnormalities
     Dosage: 40 GRAM, Q4WEEKS
  3. DIPHENHYDRAMINE [Concomitant]
     Active Substance: DIPHENHYDRAMINE
     Dosage: UNK
  4. NITROSTAT [Concomitant]
     Active Substance: NITROGLYCERIN
     Dosage: UNK
  5. POTASSIUM [Concomitant]
     Active Substance: POTASSIUM
     Dosage: UNK
  6. BUDESONIDE [Concomitant]
     Active Substance: BUDESONIDE
     Dosage: UNK
  7. SODIUM CHLORIDE [Concomitant]
     Active Substance: SODIUM CHLORIDE
     Dosage: UNK
  8. EPINEPHRINE [Concomitant]
     Active Substance: EPINEPHRINE
     Dosage: UNK
  9. COLESEVELAM HYDROCHLORIDE [Concomitant]
     Active Substance: COLESEVELAM HYDROCHLORIDE
     Dosage: UNK
  10. RESTASIS [Concomitant]
     Active Substance: CYCLOSPORINE
     Dosage: UNK
  11. FIORICET [Concomitant]
     Active Substance: ACETAMINOPHEN\BUTALBITAL\CAFFEINE
     Dosage: UNK
  12. GABAPENTIN [Concomitant]
     Active Substance: GABAPENTIN
     Dosage: UNK
  13. TRAMADOL HCL [Concomitant]
     Active Substance: TRAMADOL HYDROCHLORIDE
     Dosage: UNK
  14. ACETAMINOPHEN [Concomitant]
     Active Substance: ACETAMINOPHEN
     Dosage: UNK
  15. CHLORTHALIDONE [Concomitant]
     Active Substance: CHLORTHALIDONE
     Dosage: UNK
  16. AMLODIPINE BESYLATE [Concomitant]
     Active Substance: AMLODIPINE BESYLATE
     Dosage: UNK
  17. CRESTOR [Concomitant]
     Active Substance: ROSUVASTATIN CALCIUM
     Dosage: UNK
  18. OXYBUTYNIN [Concomitant]
     Active Substance: OXYBUTYNIN
     Dosage: UNK
  19. CYCLOBENZAPRINE [Concomitant]
     Active Substance: CYCLOBENZAPRINE
     Dosage: UNK
  20. ESTRADIOL [Concomitant]
     Active Substance: ESTRADIOL
     Dosage: UNK
  21. LISINOPRIL [Concomitant]
     Active Substance: LISINOPRIL
     Dosage: UNK
  22. NADOLOL [Concomitant]
     Active Substance: NADOLOL
     Dosage: UNK
  23. OMEPRAZOLE [Concomitant]
     Active Substance: OMEPRAZOLE
     Dosage: UNK
  24. LIDOCAINE [Concomitant]
     Active Substance: LIDOCAINE
     Dosage: UNK
  25. OXYBUTYNIN CHLORIDE [Concomitant]
     Active Substance: OXYBUTYNIN CHLORIDE
     Dosage: UNK
  26. AMIKACIN [Concomitant]
     Active Substance: AMIKACIN
     Dosage: UNK
  27. RANEXA [Concomitant]
     Active Substance: RANOLAZINE
     Dosage: UNK
  28. CEFTRIAXONE [Concomitant]
     Active Substance: CEFTRIAXONE
     Dosage: UNK
  29. CEFDINIR [Concomitant]
     Active Substance: CEFDINIR
     Dosage: UNK
  30. MOMETASONE [Concomitant]
     Active Substance: MOMETASONE
     Dosage: UNK
  31. POTASSIUM CHLORIDE [Concomitant]
     Active Substance: POTASSIUM CHLORIDE
     Dosage: UNK
  32. TRAMADOL [Concomitant]
     Active Substance: TRAMADOL
     Dosage: UNK
  33. COLESEVELAM [Concomitant]
     Active Substance: COLESEVELAM
     Dosage: UNK
  34. AMLODIPINE [Concomitant]
     Active Substance: AMLODIPINE BESYLATE
     Dosage: UNK
  35. OXYBUTYNIN [Concomitant]
     Active Substance: OXYBUTYNIN
     Dosage: UNK
  36. AMIKACIN SULFATE [Concomitant]
     Active Substance: AMIKACIN SULFATE
     Dosage: UNK
  37. DIPHENHYDRAMINE HYDROCHLORIDE [Concomitant]
     Active Substance: DIPHENHYDRAMINE HYDROCHLORIDE
     Dosage: UNK
  38. MOMETASONE FUROATE [Concomitant]
     Active Substance: MOMETASONE FUROATE
     Dosage: UNK
  39. DOXYCYCLINE HYCLATE [Concomitant]
     Active Substance: DOXYCYCLINE HYCLATE
     Dosage: UNK

REACTIONS (15)
  - Catheterisation cardiac [Unknown]
  - Pneumonia [Unknown]
  - Cardiac disorder [Unknown]
  - Pharyngitis streptococcal [Unknown]
  - Urinary tract infection [Recovered/Resolved]
  - Oliguria [Recovered/Resolved]
  - Infusion related reaction [Unknown]
  - Incorrect dose administered [Unknown]
  - Multiple allergies [Unknown]
  - Chronic sinusitis [Unknown]
  - Product dose omission issue [Unknown]
  - Product distribution issue [Unknown]
  - Sinusitis [Not Recovered/Not Resolved]
  - Influenza [Unknown]
  - Urticaria [Not Recovered/Not Resolved]

NARRATIVE: CASE EVENT DATE: 20201208
